FAERS Safety Report 4410646-2 (Version None)
Quarter: 2004Q3

REPORT INFORMATION
  Report Type: 
  Country: None (occurrence: None)
  Receive Date: 20040726
  Receipt Date: 20040713
  Transmission Date: 20050211
  Serious: No
  Sender: FDA-Public Use
  Company Number: 04P-062-0266218-00

PATIENT
  Age: 32 Year
  Sex: Female
  Weight: 51 kg

DRUGS (1)
  1. HUMIRA [Suspect]
     Indication: RHEUMATOID ARTHRITIS
     Dosage: 40 MG, 1 IN 2 WK, SUBCUTANEOUS
     Route: 058
     Dates: start: 20031201

REACTIONS (5)
  - DEPRESSION [None]
  - HEADACHE [None]
  - MOOD SWINGS [None]
  - OEDEMA [None]
  - PERIODONTITIS [None]
